FAERS Safety Report 11027698 (Version 1)
Quarter: 2015Q2

REPORT INFORMATION
  Report Type: Spontaneous
  Country: GB (occurrence: GB)
  Receive Date: 20150414
  Receipt Date: 20150414
  Transmission Date: 20150821
  Serious: Yes (Death, Other)
  Sender: FDA-Public Use
  Company Number: PHHY2015GB041970

PATIENT
  Sex: Female

DRUGS (1)
  1. PARACETAMOL [Suspect]
     Active Substance: ACETAMINOPHEN
     Indication: ANALGESIC THERAPY
     Route: 064

REACTIONS (4)
  - Internal haemorrhage [Fatal]
  - Foetal distress syndrome [Unknown]
  - Neonatal aspiration [Unknown]
  - Cardiac disorder [Unknown]
